FAERS Safety Report 4286249-X (Version None)
Quarter: 2004Q1

REPORT INFORMATION
  Report Type: 
  Country: None (occurrence: None)
  Receive Date: 20040205
  Receipt Date: 20040205
  Transmission Date: 20041129
  Serious: Yes (Life-Threatening, Hospitalization)
  Sender: FDA-Public Use
  Company Number: None

PATIENT
  Age: 86 Year
  Sex: Female
  Weight: 57 kg

DRUGS (12)
  1. TEQUIN [Suspect]
     Indication: PNEUMONIA
     Dosage: 400 MG QD PO
     Route: 048
     Dates: start: 20031204, end: 20031212
  2. TUBE FEEDINGS [Concomitant]
  3. CLONAZEPAM [Concomitant]
  4. PLAVIX [Concomitant]
  5. LACTULOSE [Concomitant]
  6. SYNTHROID [Concomitant]
  7. LOPRESSOR [Concomitant]
  8. PROTONIX [Concomitant]
  9. PAXIL [Concomitant]
  10. SINEMET [Concomitant]
  11. FLORINEF [Concomitant]
  12. MECLIZINE [Concomitant]

REACTIONS (1)
  - HYPERGLYCAEMIA [None]
